FAERS Safety Report 8733766 (Version 2)
Quarter: 2012Q4

REPORT INFORMATION
  Report Type: 
  Country: US (occurrence: US)
  Receive Date: 20120821
  Receipt Date: 20120906
  Transmission Date: 20130627
  Serious: Yes (Other)
  Sender: FDA-Public Use
  Company Number: US-PFIZER INC-2012198966

PATIENT
  Age: 63 Year
  Sex: Female
  Weight: 63.5 kg

DRUGS (2)
  1. ROBITUSSIN COUGH AND CHEST CONGESTION DM [Suspect]
     Indication: NASOPHARYNGITIS
     Dosage: UNK, 3x/day
     Route: 048
     Dates: start: 20120811, end: 20120813
  2. ROBITUSSIN COUGH AND CHEST CONGESTION DM [Suspect]
     Indication: RHINORRHOEA

REACTIONS (9)
  - Monoplegia [Recovered/Resolved]
  - Paralysis [Recovered/Resolved]
  - Pain [Recovered/Resolved]
  - Movement disorder [Recovered/Resolved]
  - Eye disorder [Recovered/Resolved]
  - Influenza like illness [Recovered/Resolved]
  - Nasopharyngitis [Recovered/Resolved]
  - Rhinorrhoea [Recovered/Resolved]
  - Pain [Recovered/Resolved]
